FAERS Safety Report 14758910 (Version 1)
Quarter: 2018Q2

REPORT INFORMATION
  Report Type: Spontaneous
  Country: FR (occurrence: FR)
  Receive Date: 20180413
  Receipt Date: 20180413
  Transmission Date: 20180711
  Serious: Yes (Other)
  Sender: FDA-Public Use
  Company Number: FR-ROCHE-2106550

PATIENT

DRUGS (2)
  1. CYCLOPHOSPHAMIDE. [Concomitant]
     Active Substance: CYCLOPHOSPHAMIDE
     Indication: PRODUCT USED FOR UNKNOWN INDICATION
     Dosage: UNK
     Route: 065
  2. RITUXIMAB. [Suspect]
     Active Substance: RITUXIMAB
     Indication: SYSTEMIC LUPUS ERYTHEMATOSUS
     Dosage: UNK (2 CYCLES)
     Route: 041

REACTIONS (4)
  - Product use in unapproved indication [Unknown]
  - Pyrexia [Recovered/Resolved]
  - Agranulocytosis [Recovered/Resolved]
  - Neutropenia [Unknown]
